FAERS Safety Report 20305738 (Version 1)
Quarter: 2022Q1

REPORT INFORMATION
  Report Type: Spontaneous
  Country: US (occurrence: None)
  Receive Date: 20220106
  Receipt Date: 20220106
  Transmission Date: 20220424
  Serious: Yes (Death)
  Sender: FDA-Public Use
  Company Number: None

PATIENT
  Sex: Male

DRUGS (5)
  1. ESBRIET [Suspect]
     Active Substance: PIRFENIDONE
     Indication: Idiopathic pulmonary fibrosis
     Dosage: WEEK 1,TAKE 1TABLET BY MOUTH THREE TIMES DAILY WITH FOOD, WEEK 2, TAKE 2 TABLETS THREE TIMES DAILY?W
     Route: 048
     Dates: start: 20191204
  2. ESBRIET [Concomitant]
     Active Substance: PIRFENIDONE
  3. ESBRIET [Concomitant]
     Active Substance: PIRFENIDONE
  4. GLIMEPIRIDE TAB [Concomitant]
  5. VERAPAMIL CAP [Concomitant]

REACTIONS (1)
  - Death [None]
